FAERS Safety Report 18607200 (Version 4)
Quarter: 2021Q4

REPORT INFORMATION
  Report Type: Spontaneous
  Country: US (occurrence: US)
  Receive Date: 20201211
  Receipt Date: 20211112
  Transmission Date: 20220303
  Serious: No
  Sender: FDA-Public Use
  Company Number: US-PFIZER INC-2020487449

PATIENT
  Age: 63 Year
  Sex: Female
  Weight: 83.91 kg

DRUGS (7)
  1. LYRICA [Suspect]
     Active Substance: PREGABALIN
     Indication: Nerve injury
     Dosage: 200 MG, 3X/DAY (TAKE ONE THREE TIME DAILY BY MOUTH)
     Route: 048
     Dates: start: 2017
  2. LYRICA [Suspect]
     Active Substance: PREGABALIN
     Indication: Neuralgia
     Dosage: 3 DF, DAILY [3 PILLS A DAY]
  3. LYRICA [Suspect]
     Active Substance: PREGABALIN
     Dosage: 1 DF, DAILY [1 PILL A DAY]
  4. DULOXETINE [Concomitant]
     Active Substance: DULOXETINE
     Indication: Pain
     Dosage: 60 MG, 1X/DAY [60MG; TAKE ONCE DAILY BY MOUTH]
     Route: 048
  5. DULOXETINE [Concomitant]
     Active Substance: DULOXETINE
     Indication: Depression
  6. METHOCARBAMOL [Concomitant]
     Active Substance: METHOCARBAMOL
     Indication: Muscle tightness
     Dosage: 500 MG, AS NEEDED [500MG; TAKE ONE TO TWO DAILY BY MOUTH AS NEEDED]
     Route: 048
  7. ROSUVASTATIN [Concomitant]
     Active Substance: ROSUVASTATIN
     Indication: Blood cholesterol abnormal
     Dosage: 5 MG, 1X/DAY [5MG; TAKE ONCE DAILY BY MOUTH]
     Route: 048

REACTIONS (9)
  - Drug ineffective [Unknown]
  - Weight increased [Not Recovered/Not Resolved]
  - Illness [Unknown]
  - Pain [Unknown]
  - Nerve injury [Unknown]
  - Gait disturbance [Unknown]
  - Neuralgia [Unknown]
  - Loss of personal independence in daily activities [Unknown]
  - Peripheral swelling [Not Recovered/Not Resolved]

NARRATIVE: CASE EVENT DATE: 20170101
